FAERS Safety Report 12964227 (Version 1)
Quarter: 2016Q4

REPORT INFORMATION
  Report Type: Spontaneous
  Country: US (occurrence: US)
  Receive Date: 20161122
  Receipt Date: 20161122
  Transmission Date: 20170207
  Serious: No
  Sender: FDA-Public Use
  Company Number: US-TEVA-707522ACC

PATIENT
  Age: 20 Year
  Sex: Female
  Weight: 70.37 kg

DRUGS (1)
  1. PLAN B ONE-STEP [Suspect]
     Active Substance: LEVONORGESTREL
     Indication: POST COITAL CONTRACEPTION
     Dates: start: 20161020, end: 20161020

REACTIONS (4)
  - Dizziness [Recovered/Resolved]
  - Abdominal pain [Unknown]
  - Abdominal distension [Unknown]
  - Nausea [Not Recovered/Not Resolved]

NARRATIVE: CASE EVENT DATE: 20161023
